FAERS Safety Report 15276822 (Version 1)
Quarter: 2018Q3

REPORT INFORMATION
  Report Type: Spontaneous
  Country: DK (occurrence: DK)
  Receive Date: 20180814
  Receipt Date: 20180814
  Transmission Date: 20181010
  Serious: Yes (Hospitalization)
  Sender: FDA-Public Use
  Company Number: DK-JNJFOC-20180810332

PATIENT
  Age: 82 Year
  Sex: Female

DRUGS (9)
  1. IMBRUVICA [Suspect]
     Active Substance: IBRUTINIB
     Indication: CHRONIC LYMPHOCYTIC LEUKAEMIA
     Dosage: STRENGTH: 140 MG
     Route: 048
     Dates: start: 20170921, end: 2018
  2. ESCITALOPRAM [Concomitant]
     Active Substance: ESCITALOPRAM OXALATE
     Indication: ANXIETY
     Dosage: STRENGTH: 10 MG
     Route: 048
     Dates: start: 20170509
  3. CLEMASTINE [Concomitant]
     Active Substance: CLEMASTINE
     Indication: ANTIALLERGIC THERAPY
     Dosage: DOSAGE: 1 TABLET AS NEEDED, NO MORE THAN TWICE A DAY. SYRKE: 1 MG.
     Route: 048
     Dates: start: 20130927
  4. TIOTROPIUM [Concomitant]
     Active Substance: TIOTROPIUM
     Indication: CHRONIC OBSTRUCTIVE PULMONARY DISEASE
     Dosage: STRENGTH: 18 +#956;G.
     Route: 055
     Dates: start: 20171123
  5. PARACETAMOL [Concomitant]
     Active Substance: ACETAMINOPHEN
     Indication: PAIN
     Dosage: DOSAGE: 2 TABLETS AS NEEDED, NO MORE THAN 4 TIMES A DAY. STRENGTH: 500 MG
     Route: 048
     Dates: start: 20170713
  6. ALLOPURINOL. [Concomitant]
     Active Substance: ALLOPURINOL
     Indication: GOUTY ARTHRITIS
     Dosage: STRENGTH: 300 MG
     Route: 048
     Dates: start: 20170728
  7. BUDESONIDE W/FORMOTEROL [Concomitant]
     Active Substance: BUDESONIDE\FORMOTEROL
     Indication: CHRONIC OBSTRUCTIVE PULMONARY DISEASE
     Dosage: STRENGTH: 9 + 320 +#956;G / DOSE
     Route: 055
     Dates: start: 20171123
  8. SALBUTAMOL [Concomitant]
     Active Substance: ALBUTEROL
     Indication: CHRONIC OBSTRUCTIVE PULMONARY DISEASE
     Dosage: DOSAGE: 2.5 ML AS NEEDED. STRENGTH: 1 MG / ML.
     Route: 055
     Dates: start: 20171123
  9. OMEPRAZOLE. [Concomitant]
     Active Substance: OMEPRAZOLE
     Indication: REFLUX GASTRITIS
     Dosage: STRENGTH: 20 MG
     Route: 048
     Dates: start: 20170713

REACTIONS (7)
  - Balance disorder [Unknown]
  - Off label use [Unknown]
  - Trifascicular block [Recovered/Resolved with Sequelae]
  - Incorrect dose administered [Unknown]
  - Cardiac pacemaker insertion [Unknown]
  - Dizziness [Unknown]
  - Sinoatrial block [Unknown]

NARRATIVE: CASE EVENT DATE: 201709
